FAERS Safety Report 4467839-8 (Version None)
Quarter: 2004Q4

REPORT INFORMATION
  Report Type: 
  Country: None (occurrence: None)
  Receive Date: 20041004
  Receipt Date: 20041004
  Transmission Date: 20050328
  Serious: Yes (Hospitalization, Disabling, Other)
  Sender: FDA-Public Use
  Company Number: None

PATIENT
  Age: 21 Year
  Sex: Male
  Weight: 80.7403 kg

DRUGS (1)
  1. EFFEXOR XR  150MG-75MG-37.5MG AT DIFFERENT INT  WYETH, EFFEXOR XR [Suspect]
     Indication: DEPRESSION
     Dosage: 75MG  1 TIME A DAY  ORAL
     Route: 048

REACTIONS (8)
  - ABASIA [None]
  - DRUG WITHDRAWAL SYNDROME [None]
  - HYPERSOMNIA [None]
  - IMPAIRED DRIVING ABILITY [None]
  - LOSS OF EMPLOYMENT [None]
  - MIGRAINE [None]
  - PARALYSIS [None]
  - SEXUAL DYSFUNCTION [None]
